FAERS Safety Report 16432548 (Version 3)
Quarter: 2019Q3

REPORT INFORMATION
  Report Type: Not Available
  Country: US (occurrence: US)
  Receive Date: 20190614
  Receipt Date: 20190712
  Transmission Date: 20191004
  Serious: Yes (Hospitalization)
  Sender: FDA-Public Use
  Company Number: US-NEUROCRINE BIOSCIENCES INC.-2019NBI01478

PATIENT
  Age: 50 Year
  Sex: Female

DRUGS (6)
  1. CLONAZEPAM. [Concomitant]
     Active Substance: CLONAZEPAM
     Indication: ANXIETY
     Dosage: FOUR TIMES A DAY AS NEEDED
  2. DOXEPIN [Concomitant]
     Active Substance: DOXEPIN
     Dosage: TWO CAPSULES AT BEDTIME AS NEEDED
  3. INGREZZA [Suspect]
     Active Substance: VALBENAZINE
     Route: 048
     Dates: start: 20180105
  4. PALIPERIDONE. [Concomitant]
     Active Substance: PALIPERIDONE
     Indication: PSYCHOTHERAPY
     Dosage: AT BEDTIME
  5. CYMBALTA [Concomitant]
     Active Substance: DULOXETINE HYDROCHLORIDE
     Indication: DEPRESSION
  6. INGREZZA [Suspect]
     Active Substance: VALBENAZINE
     Indication: TARDIVE DYSKINESIA
     Route: 048
     Dates: start: 20171228, end: 20180104

REACTIONS (2)
  - Heat exhaustion [Recovered/Resolved]
  - Dementia [Not Recovered/Not Resolved]

NARRATIVE: CASE EVENT DATE: 20190515
